FAERS Safety Report 6653967-5 (Version None)
Quarter: 2010Q1

REPORT INFORMATION
  Report Type: 
  Country: None (occurrence: None)
  Receive Date: 20100324
  Receipt Date: 20100316
  Transmission Date: 20100710
  Serious: Yes (Death)
  Sender: FDA-Public Use
  Company Number: 2009SP034365

PATIENT
  Age: 74 Year
  Sex: Female
  Weight: 49.2 kg

DRUGS (15)
  1. REMERON [Suspect]
     Indication: DEPRESSION
     Dosage: 15 MG;PO
     Route: 048
     Dates: start: 20090930, end: 20091002
  2. PAXIL [Concomitant]
  3. MYSLEE [Concomitant]
  4. TRIAZOLAM [Concomitant]
  5. RIZE [Concomitant]
  6. ABILIT [Concomitant]
  7. RESLIN [Concomitant]
  8. ALDACTONE [Concomitant]
  9. HAJIME [Concomitant]
  10. AMARYL [Concomitant]
  11. BEZATOL SR [Concomitant]
  12. CANDESARTAN CILEXETIL [Concomitant]
  13. TSUKUSHI AM [Concomitant]
  14. GASMOTIN [Concomitant]
  15. MAGNESIUM OXIDE [Concomitant]

REACTIONS (6)
  - ACTIVATION SYNDROME [None]
  - COMPLETED SUICIDE [None]
  - CONDITION AGGRAVATED [None]
  - DEPRESSION [None]
  - ELEVATED MOOD [None]
  - INSOMNIA [None]
